FAERS Safety Report 5069521-5 (Version None)
Quarter: 2006Q3

REPORT INFORMATION
  Report Type: 
  Country: None (occurrence: None)
  Receive Date: 20060803
  Receipt Date: 20060727
  Transmission Date: 20061208
  Serious: Yes (Other)
  Sender: FDA-Public Use
  Company Number: CA-BAYER-200613267GDS

PATIENT
  Age: 57 Year
  Sex: Male
  Weight: 76 kg

DRUGS (1)
  1. SORAFENIB [Suspect]
     Indication: RENAL CELL CARCINOMA STAGE UNSPECIFIED
     Dosage: TOTAL DAILY DOSE: 800 MG
     Route: 048
     Dates: end: 20060706

REACTIONS (2)
  - SQUAMOUS CELL CARCINOMA [None]
  - WOUND DEHISCENCE [None]
